FAERS Safety Report 6765073-X (Version None)
Quarter: 2010Q2

REPORT INFORMATION
  Report Type: 
  Country: None (occurrence: None)
  Receive Date: 20100610
  Receipt Date: 20091204
  Transmission Date: 20101027
  Serious: Yes (Hospitalization)
  Sender: FDA-Public Use
  Company Number: IT-GENENTECH-295752

PATIENT
  Sex: Male
  Weight: 72 kg

DRUGS (7)
  1. RITUXIMAB [Suspect]
     Indication: LEUKAEMIC LYMPHOMA
     Dosage: 670 MG, 1/WEEK
     Route: 042
     Dates: start: 20091203
  2. ALLOPURINOL [Concomitant]
     Indication: DRUG USE FOR UNKNOWN INDICATION
     Dosage: UNK
     Dates: start: 20091202
  3. SELEPARINA [Concomitant]
     Indication: DRUG USE FOR UNKNOWN INDICATION
     Dosage: UNK
     Dates: start: 20091029
  4. PROVISACOR [Concomitant]
     Indication: DRUG USE FOR UNKNOWN INDICATION
     Dosage: UNK
  5. DEURSIL [Concomitant]
     Indication: DRUG USE FOR UNKNOWN INDICATION
     Dosage: UNK
  6. PARACETAMOLO [Concomitant]
     Indication: DRUG USE FOR UNKNOWN INDICATION
     Dosage: UNK
     Dates: start: 20091203, end: 20091203
  7. TRIMETON [Concomitant]
     Indication: DRUG USE FOR UNKNOWN INDICATION
     Dosage: UNK
     Dates: start: 20091203, end: 20091203

REACTIONS (2)
  - HEAD INJURY [None]
  - SYNCOPE [None]
